FAERS Safety Report 17718815 (Version 2)
Quarter: 2020Q2

REPORT INFORMATION
  Report Type: Spontaneous
  Country: FR (occurrence: FR)
  Receive Date: 20200428
  Receipt Date: 20200429
  Transmission Date: 20200714
  Serious: Yes (Death)
  Sender: FDA-Public Use
  Company Number: FR-PFIZER INC-2020166827

PATIENT
  Age: 67 Year
  Sex: Male
  Weight: 75.6 kg

DRUGS (7)
  1. FLUOROURACIL. [Suspect]
     Active Substance: FLUOROURACIL
     Indication: OESOPHAGEAL CARCINOMA
     Dosage: 2650 MG, CYCLIC
     Route: 041
     Dates: start: 20200309, end: 20200309
  2. AUGMENTIN [Suspect]
     Active Substance: AMOXICILLIN\CLAVULANATE POTASSIUM
     Indication: ANTIBIOTIC THERAPY
     Dosage: 3 G, 1X/DAY
     Route: 042
     Dates: start: 20200303, end: 20200310
  3. INDAPAMIDE. [Suspect]
     Active Substance: INDAPAMIDE
     Indication: HYPERTENSION
     Dosage: 2.5 MG, 1X/DAY
     Route: 048
     Dates: end: 20200314
  4. CISPLATIN. [Suspect]
     Active Substance: CISPLATIN
     Indication: OESOPHAGEAL CARCINOMA
     Dosage: 76 MG, CYCLIC
     Route: 041
     Dates: start: 20200309, end: 20200309
  5. EXFORGE [Suspect]
     Active Substance: AMLODIPINE BESYLATE\VALSARTAN
     Indication: HYPERTENSION
     Dosage: 1 DF, 1X/DAY
     Route: 048
     Dates: end: 20200314
  6. DOCETAXEL. [Suspect]
     Active Substance: DOCETAXEL
     Indication: OESOPHAGEAL CARCINOMA
     Dosage: 76 MG, CYCLIC
     Route: 041
     Dates: start: 20200309, end: 20200309
  7. CANDESARTAN CILEXETIL. [Suspect]
     Active Substance: CANDESARTAN CILEXETIL
     Indication: HYPERTENSION
     Dosage: 8 MG, 1X/DAY
     Route: 048
     Dates: start: 20200310, end: 20200314

REACTIONS (4)
  - Gastrointestinal ischaemia [Fatal]
  - Hypovolaemic shock [Fatal]
  - Hepatic ischaemia [Fatal]
  - Diarrhoea [Fatal]

NARRATIVE: CASE EVENT DATE: 202003
